FAERS Safety Report 14830931 (Version 2)
Quarter: 2018Q3

REPORT INFORMATION
  Report Type: Report from Study
  Country: None (occurrence: US)
  Receive Date: 20180430
  Receipt Date: 20180831
  Transmission Date: 20181010
  Serious: Yes (Other)
  Sender: FDA-Public Use
  Company Number: US-ABBVIE-18K-163-2339702-00

PATIENT
  Age: 52 Year
  Sex: Male
  Weight: 61.29 kg

DRUGS (9)
  1. PREVACID [Concomitant]
     Active Substance: LANSOPRAZOLE
     Indication: CROHN^S DISEASE
  2. REMERON [Concomitant]
     Active Substance: MIRTAZAPINE
     Indication: DUMPING SYNDROME
  3. MIRALAX [Concomitant]
     Active Substance: POLYETHYLENE GLYCOL 3350
     Indication: GASTROINTESTINAL DISORDER
  4. HUMIRA [Suspect]
     Active Substance: ADALIMUMAB
     Route: 058
     Dates: start: 201807
  5. IMURAN [Suspect]
     Active Substance: AZATHIOPRINE
     Indication: CROHN^S DISEASE
     Dosage: GENERIC FORM
     Route: 048
     Dates: start: 2010
  6. HUMIRA [Suspect]
     Active Substance: ADALIMUMAB
     Indication: CROHN^S DISEASE
     Route: 058
     Dates: start: 201708, end: 201805
  7. VITAMIN D [Concomitant]
     Active Substance: CHOLECALCIFEROL
     Indication: VITAMIN SUPPLEMENTATION
  8. PRISTIQ EXTENDED?RELEASE [Concomitant]
     Active Substance: DESVENLAFAXINE SUCCINATE
     Indication: ANTIDEPRESSANT THERAPY
  9. REMERON [Concomitant]
     Active Substance: MIRTAZAPINE
     Indication: CROHN^S DISEASE

REACTIONS (11)
  - Eye irritation [Not Recovered/Not Resolved]
  - Eyelid pain [Unknown]
  - Spinal column stenosis [Not Recovered/Not Resolved]
  - Procedural pain [Recovering/Resolving]
  - Post procedural complication [Recovering/Resolving]
  - Eyelids pruritus [Unknown]
  - Eyelid oedema [Unknown]
  - Post procedural swelling [Recovering/Resolving]
  - Erythema of eyelid [Unknown]
  - Hypoaesthesia [Recovering/Resolving]
  - Impaired healing [Not Recovered/Not Resolved]

NARRATIVE: CASE EVENT DATE: 201708
